FAERS Safety Report 15247682 (Version 1)
Quarter: 2018Q3

REPORT INFORMATION
  Report Type: Spontaneous
  Country: CN (occurrence: CN)
  Receive Date: 20180807
  Receipt Date: 20180807
  Transmission Date: 20181010
  Serious: Yes (Hospitalization)
  Sender: FDA-Public Use
  Company Number: CN-ASTELLAS-2018US034684

PATIENT
  Age: 60 Year
  Sex: Male

DRUGS (14)
  1. TACROLIMUS. [Interacting]
     Active Substance: TACROLIMUS
     Dosage: 0.5 MG, ONCE DAILY
     Route: 048
  2. VORICONAZOLE. [Interacting]
     Active Substance: VORICONAZOLE
     Indication: ANTIFUNGAL TREATMENT
     Route: 048
     Dates: end: 20171020
  3. TACROLIMUS. [Interacting]
     Active Substance: TACROLIMUS
     Dosage: 0.5 MG, EVERY OTHER DAY
     Route: 048
  4. METHYLPREDNISOLONE. [Concomitant]
     Active Substance: METHYLPREDNISOLONE
     Indication: LUNG TRANSPLANT
     Route: 048
  5. TACROLIMUS. [Interacting]
     Active Substance: TACROLIMUS
     Dosage: 0.5 MG, UNKNOWN FREQ. (EVERY 4 DAYS)
     Route: 048
  6. TACROLIMUS. [Interacting]
     Active Substance: TACROLIMUS
     Dosage: 0.5 MG, ONCE DAILY
     Route: 048
  7. VORICONAZOLE. [Interacting]
     Active Substance: VORICONAZOLE
     Route: 048
  8. AMLODIPINE BESYLATE. [Concomitant]
     Active Substance: AMLODIPINE BESYLATE
     Indication: HYPERTENSION
     Dosage: UNK UNK, UNKNOWN FREQ.
     Route: 048
  9. TACROLIMUS. [Interacting]
     Active Substance: TACROLIMUS
     Dosage: 0.5 MG, ONCE DAILY
     Route: 048
  10. TACROLIMUS. [Interacting]
     Active Substance: TACROLIMUS
     Route: 048
  11. TACROLIMUS. [Interacting]
     Active Substance: TACROLIMUS
     Dosage: 0.5 MG, UNKNOWN FREQ. (ONCE EVRY 4 DAYS)
     Route: 048
  12. TACROLIMUS. [Suspect]
     Active Substance: TACROLIMUS
     Indication: LUNG TRANSPLANT
     Dosage: 0.5 MG, ONCE DAILY
     Route: 048
  13. TACROLIMUS. [Interacting]
     Active Substance: TACROLIMUS
     Dosage: 0.5 MG, EVERY OTHER DAY
     Route: 048
  14. MYCOPHENOLATE MOFETIL. [Concomitant]
     Active Substance: MYCOPHENOLATE MOFETIL
     Indication: LUNG TRANSPLANT
     Route: 048

REACTIONS (10)
  - Candida infection [Unknown]
  - Enterobacter infection [Unknown]
  - Cytomegalovirus infection [Unknown]
  - Immunosuppressant drug level increased [Recovering/Resolving]
  - Pulmonary tuberculosis [Unknown]
  - Blood glucose increased [Unknown]
  - Pseudomonas infection [Unknown]
  - Acinetobacter infection [Unknown]
  - Drug interaction [Unknown]
  - Immunosuppressant drug level decreased [Recovering/Resolving]
